FAERS Safety Report 8613352-3 (Version None)
Quarter: 2012Q3

REPORT INFORMATION
  Report Type: 
  Country: None (occurrence: None)
  Receive Date: 20120822
  Receipt Date: 20120806
  Transmission Date: 20120928
  Serious: Yes (Other)
  Sender: FDA-Public Use
  Company Number: US-009507513-1207USA002367

PATIENT

DRUGS (9)
  1. PEG-INTRON [Suspect]
     Dosage: 180 MICROGRAM, QW, PER INJECTION
     Route: 058
  2. TRICOR [Concomitant]
     Dosage: UNK
  3. MICARDIS [Concomitant]
     Dosage: UNK
  4. OMEGA-3-ACID ETHYL ESTERS [Concomitant]
     Dosage: UNK
  5. REBETOL [Suspect]
     Dosage: UNK
  6. WELLBUTRIN [Concomitant]
     Dosage: UNK
  7. CARDURA [Concomitant]
     Dosage: UNK
  8. VITAMIN E [Concomitant]
     Dosage: UNK
  9. GLUCOSAMINE [Concomitant]
     Dosage: UNK

REACTIONS (15)
  - AMNESIA [None]
  - NAUSEA [None]
  - APHONIA [None]
  - ALOPECIA [None]
  - INJECTION SITE EXFOLIATION [None]
  - DRY MOUTH [None]
  - FATIGUE [None]
  - ANORECTAL DISCOMFORT [None]
  - CONFUSIONAL STATE [None]
  - DIARRHOEA [None]
  - DYSPNOEA [None]
  - DEPRESSED MOOD [None]
  - ANAEMIA [None]
  - DRY SKIN [None]
  - RECTAL HAEMORRHAGE [None]
